FAERS Safety Report 19167208 (Version 1)
Quarter: 2021Q2

REPORT INFORMATION
  Report Type: Spontaneous
  Country: US (occurrence: US)
  Receive Date: 20210422
  Receipt Date: 20210422
  Transmission Date: 20210717
  Serious: No
  Sender: FDA-Public Use
  Company Number: US-GLAXOSMITHKLINE-USCH2021020739

PATIENT

DRUGS (2)
  1. VOLTAREN ARTHRITIS PAIN [Suspect]
     Active Substance: DICLOFENAC SODIUM
     Indication: ARTHRITIS
  2. SALONPAS PAIN RELIEF [Suspect]
     Active Substance: MENTHOL\METHYL SALICYLATE
     Indication: BACK PAIN

REACTIONS (1)
  - Drug ineffective [Unknown]
